FAERS Safety Report 6557012-1 (Version None)
Quarter: 2010Q1

REPORT INFORMATION
  Report Type: 
  Country: None (occurrence: None)
  Receive Date: 20100128
  Receipt Date: 20100118
  Transmission Date: 20100710
  Serious: Yes (Hospitalization, Other)
  Sender: FDA-Public Use
  Company Number: CA-ABBOTT-10P-028-0619897-00

PATIENT
  Weight: 36.32 kg

DRUGS (1)
  1. HUMIRA [Suspect]
     Indication: CROHN'S DISEASE
     Route: 058
     Dates: start: 20070816

REACTIONS (10)
  - ABDOMINAL PAIN [None]
  - BACTERAEMIA [None]
  - CHOLELITHIASIS [None]
  - GENERAL PHYSICAL HEALTH DETERIORATION [None]
  - INTESTINAL RESECTION [None]
  - PARENTERAL NUTRITION [None]
  - POSTOPERATIVE WOUND COMPLICATION [None]
  - PROCEDURAL COMPLICATION [None]
  - REGURGITATION [None]
  - WEIGHT DECREASED [None]
